FAERS Safety Report 7492757-0 (Version None)
Quarter: 2011Q2

REPORT INFORMATION
  Report Type: 
  Country: None (occurrence: None)
  Receive Date: 20110519
  Receipt Date: 20110506
  Transmission Date: 20111010
  Serious: Yes (Hospitalization, Other)
  Sender: FDA-Public Use
  Company Number: US-AMGEN-USASP2011023893

PATIENT
  Sex: Male

DRUGS (14)
  1. ZOCOR [Concomitant]
     Dosage: 40 MG, UNK
  2. ARANESP [Suspect]
     Dosage: 250 A?G, QWK
     Route: 042
     Dates: start: 20110330, end: 20110405
  3. ARANESP [Suspect]
     Dosage: 300 A?G, QWK
     Route: 042
     Dates: start: 20110413, end: 20110426
  4. ARANESP [Suspect]
     Dosage: 225 A?G, QWK
     Route: 042
     Dates: start: 20110427, end: 20110502
  5. OMEPRAZOLE [Concomitant]
     Dosage: 20 MG, BID
  6. ARANESP [Suspect]
     Dosage: 280 A?G, QWK
     Route: 042
     Dates: start: 20110406, end: 20110412
  7. INULIN [Concomitant]
     Dosage: UNK
  8. XIFAXAN [Concomitant]
     Dosage: 550 MG, BID
  9. PROPRANOLOL [Concomitant]
     Dosage: 10 MG, UNK
  10. PAROXETINE HCL [Concomitant]
     Dosage: 20 MG, UNK
  11. ARANESP [Suspect]
     Indication: ANAEMIA
     Dosage: 300 A?G, QWK
     Route: 042
     Dates: start: 20101201, end: 20110315
  12. ARANESP [Suspect]
     Dosage: 225 A?G, QWK
     Route: 042
     Dates: start: 20110316, end: 20110329
  13. ARANESP [Suspect]
     Dosage: 300 A?G, QWK
     Route: 042
     Dates: start: 20110503
  14. LACTULOSE [Concomitant]
     Dosage: 30 G, UNK

REACTIONS (15)
  - ARTERIOVENOUS MALFORMATION [None]
  - GASTROINTESTINAL HAEMORRHAGE [None]
  - THERAPEUTIC RESPONSE DECREASED [None]
  - HEPATIC ENCEPHALOPATHY [None]
  - CEREBRAL ATROPHY [None]
  - MELAENA [None]
  - HAEMORRHOIDS [None]
  - HYPERPHAGIA [None]
  - DYSTROPHIC CALCIFICATION [None]
  - HAEMOGLOBIN DECREASED [None]
  - GASTRIC ANTRAL VASCULAR ECTASIA [None]
  - CARDIOMEGALY [None]
  - HAEMATEMESIS [None]
  - VASCULAR RESISTANCE PULMONARY INCREASED [None]
  - LIVER DISORDER [None]
